FAERS Safety Report 18018749 (Version 1)
Quarter: 2020Q3

REPORT INFORMATION
  Report Type: Spontaneous
  Country: US (occurrence: US)
  Receive Date: 20200713
  Receipt Date: 20200713
  Transmission Date: 20201103
  Serious: Yes (Death)
  Sender: FDA-Public Use
  Company Number: None

PATIENT
  Age: 90 Year
  Sex: Female

DRUGS (16)
  1. ASPIRIN. [Concomitant]
     Active Substance: ASPIRIN
  2. NITROFURANTIN [Concomitant]
     Active Substance: NITROFURANTOIN
  3. ASPIRIN 81 [Concomitant]
     Active Substance: ASPIRIN
  4. CALCIUM, [Concomitant]
  5. VITAMIN B12 [Concomitant]
     Active Substance: CYANOCOBALAMIN
  6. DOK [Concomitant]
     Active Substance: DOCUSATE SODIUM
  7. DONNATAL ELX [Concomitant]
  8. GLYCOPYRROL [Concomitant]
  9. TRAZODONE [Concomitant]
     Active Substance: TRAZODONE HYDROCHLORIDE
  10. TETRABENAZINE 25MG TAB (248) [Suspect]
     Active Substance: TETRABENAZINE
     Route: 048
     Dates: start: 20170326
  11. TETRABENAZINE 25MG TAB (112) [Suspect]
     Active Substance: TETRABENAZINE
     Route: 048
     Dates: start: 20170326
  12. OMEPRAZOLE. [Concomitant]
     Active Substance: OMEPRAZOLE
  13. ESCITALOPRAM [Concomitant]
     Active Substance: ESCITALOPRAM OXALATE
  14. AMLODIPINE [Concomitant]
     Active Substance: AMLODIPINE BESYLATE
  15. LACTULOSE. [Concomitant]
     Active Substance: LACTULOSE
  16. QUETIAPINE. [Concomitant]
     Active Substance: QUETIAPINE

REACTIONS (1)
  - Death [None]

NARRATIVE: CASE EVENT DATE: 20200711
